FAERS Safety Report 18839145 (Version 2)
Quarter: 2021Q1

REPORT INFORMATION
  Report Type: Report from Study
  Country: US (occurrence: US)
  Receive Date: 20210203
  Receipt Date: 20210323
  Transmission Date: 20210419
  Serious: Yes (Hospitalization)
  Sender: FDA-Public Use
  Company Number: US-ASTRAZENECA-2021A010981

PATIENT
  Age: 52 Month
  Sex: Female
  Weight: 20 kg

DRUGS (7)
  1. MULTIVITAMIN [Concomitant]
     Active Substance: VITAMINS
  2. TOPAMAX [Concomitant]
     Active Substance: TOPIRAMATE
  3. ZOFRAN [Concomitant]
     Active Substance: ONDANSETRON HYDROCHLORIDE
  4. KOSELUGO [Suspect]
     Active Substance: SELUMETINIB
     Indication: MALIGNANT GLIOMA
     Route: 048
     Dates: start: 20201110, end: 20210128
  5. IRON CHEWS [Concomitant]
     Active Substance: IRON PENTACARBONYL
  6. KOSELUGO [Suspect]
     Active Substance: SELUMETINIB
     Indication: BRAIN NEOPLASM MALIGNANT
     Route: 048
     Dates: start: 20201110, end: 20210128
  7. LUPRON DEPOT [Concomitant]
     Active Substance: LEUPROLIDE ACETATE

REACTIONS (5)
  - Headache [Recovered/Resolved]
  - Fatigue [Recovered/Resolved]
  - Hydrocephalus [Recovering/Resolving]
  - Asthenia [Not Recovered/Not Resolved]
  - Neoplasm progression [Recovered/Resolved]

NARRATIVE: CASE EVENT DATE: 202101
